FAERS Safety Report 8417086-X (Version None)
Quarter: 2012Q2

REPORT INFORMATION
  Report Type: 
  Country: None (occurrence: None)
  Receive Date: 20120606
  Receipt Date: 20120529
  Transmission Date: 20120825
  Serious: Yes (Hospitalization)
  Sender: FDA-Public Use
  Company Number: US-US-EMD SERONO, INC.-7136390

PATIENT
  Sex: Female

DRUGS (2)
  1. REBIF [Suspect]
     Indication: PRODUCT USED FOR UNKNOWN INDICATION
     Dates: start: 20090514, end: 20120101
  2. REBIF [Suspect]
     Dates: start: 20120401

REACTIONS (5)
  - ALOPECIA [None]
  - DEPRESSION [None]
  - AUTOIMMUNE DISORDER [None]
  - MOOD SWINGS [None]
  - RED BLOOD CELL COUNT DECREASED [None]
